FAERS Safety Report 9547846 (Version 1)
Quarter: 2013Q2

REPORT INFORMATION
  Report Type: Spontaneous
  Country: US (occurrence: None)
  Receive Date: 20130628
  Receipt Date: 20130628
  Transmission Date: 20140414
  Serious: Yes (Other)
  Sender: FDA-Public Use
  Company Number: 394732

PATIENT
  Sex: 0

DRUGS (3)
  1. MEPIVACAINE HYDROCHLORIDE [Suspect]
     Indication: NERVE BLOCK
     Dosage: 10 CC, ONCE, INTRASCALENE, UNKNOWN, OTHER
     Dates: start: 20090916, end: 20090916
  2. ROPIVACAINE [Suspect]
     Indication: NERVE BLOCK
     Dosage: 10 CC, ONCE, INTRASCALENE, UNKNOWN, OTHER
     Dates: start: 20090916, end: 20090916
  3. DEXAMETHASONE [Suspect]
     Indication: NERVE BLOCK
     Dosage: 4MG, ONCE, INTRASCALENE, UNKNOWN, OTHER
     Dates: start: 20090916, end: 20090916

REACTIONS (1)
  - Convulsion [None]
